FAERS Safety Report 5812628-2 (Version None)
Quarter: 2008Q3

REPORT INFORMATION
  Report Type: 
  Country: None (occurrence: None)
  Receive Date: 20080714
  Receipt Date: 20080714
  Transmission Date: 20090109
  Serious: No
  Sender: FDA-Public Use
  Company Number: None

PATIENT
  Age: 41 Year
  Sex: Female
  Weight: 120.2032 kg

DRUGS (7)
  1. ZOLPIDEM [Suspect]
     Indication: INSOMNIA
     Dosage: 10MG ONCE AT BEDTIME PO
     Route: 048
     Dates: start: 20080711, end: 20080711
  2. DETROL LA [Concomitant]
  3. ACIDPHEX [Concomitant]
  4. PROZAC [Concomitant]
  5. FERROUS SULFATE TAB [Concomitant]
  6. ASCORBIC ACID [Concomitant]
  7. ZYRTEC [Concomitant]

REACTIONS (5)
  - AGITATION [None]
  - ANXIETY [None]
  - DRY MOUTH [None]
  - PANIC REACTION [None]
  - SOMNOLENCE [None]
